FAERS Safety Report 10053120 (Version 2)
Quarter: 2014Q2

REPORT INFORMATION
  Report Type: Report from Study
  Country: DE (occurrence: DE)
  Receive Date: 20140402
  Receipt Date: 20140507
  Transmission Date: 20141212
  Serious: Yes (Other)
  Sender: FDA-Public Use
  Company Number: PHHY2014DE035933

PATIENT
  Sex: Female

DRUGS (3)
  1. FTY 720 [Suspect]
     Dosage: 0.5 MG, UNK
     Route: 048
     Dates: start: 201304
  2. FTY 720 [Suspect]
     Dosage: 0.5 MG, UNK
     Route: 048
     Dates: start: 201401
  3. FTY 720 [Suspect]
     Dosage: 0.5 MG, UNK
     Route: 048
     Dates: start: 201403

REACTIONS (3)
  - Hypertensive crisis [Unknown]
  - Multiple sclerosis relapse [Unknown]
  - Hypokalaemia [Unknown]
